FAERS Safety Report 11116271 (Version 1)
Quarter: 2015Q2

REPORT INFORMATION
  Report Type: Spontaneous
  Country: US (occurrence: None)
  Receive Date: 20150514
  Receipt Date: 20150514
  Transmission Date: 20150821
  Serious: Yes (Hospitalization)
  Sender: FDA-Public Use
  Company Number: None

PATIENT
  Age: 56 Year
  Sex: Male
  Weight: 81.65 kg

DRUGS (11)
  1. PRAVASTATIN [Concomitant]
     Active Substance: PRAVASTATIN\PRAVASTATIN SODIUM
  2. NOVOLOG [Suspect]
     Active Substance: INSULIN ASPART
     Indication: DIABETES MELLITUS
     Dosage: SLIDING SCALE GIVEN INTO/UNDER THE SKIN
     Dates: start: 20150504, end: 20150509
  3. HYDROCODONE [Concomitant]
     Active Substance: HYDROCODONE
  4. INSULIN [Concomitant]
     Active Substance: INSULIN NOS
  5. WATER PILL [Concomitant]
     Active Substance: UNSPECIFIED INGREDIENT
  6. LEVOTHYROXINE [Concomitant]
     Active Substance: LEVOTHYROXINE
  7. GABAPENTIN. [Concomitant]
     Active Substance: GABAPENTIN
  8. LOSARTIN [Concomitant]
     Active Substance: LOSARTAN
  9. INSULIN PUMP [Concomitant]
     Active Substance: INSULIN NOS
  10. OMEPROZOLE [Concomitant]
  11. ASPIRIN. [Concomitant]
     Active Substance: ASPIRIN

REACTIONS (2)
  - Product substitution issue [None]
  - Diabetic ketoacidosis [None]

NARRATIVE: CASE EVENT DATE: 20150505
